FAERS Safety Report 9478311 (Version 2)
Quarter: 2013Q4

REPORT INFORMATION
  Report Type: Spontaneous
  Country: US (occurrence: US)
  Receive Date: 20130827
  Receipt Date: 20131024
  Transmission Date: 20140711
  Serious: Yes (Other)
  Sender: FDA-Public Use
  Company Number: US-FRI-1000048082

PATIENT
  Age: 57 Year
  Sex: Female

DRUGS (7)
  1. TUDORZA PRESSAIR [Suspect]
     Indication: CHRONIC OBSTRUCTIVE PULMONARY DISEASE
     Dosage: 800 MCG
     Route: 055
     Dates: start: 20130430
  2. CAFFEINE [Suspect]
  3. PREDNISONE [Concomitant]
     Dosage: 20 MG
  4. ACYCLOVIR [Concomitant]
     Dosage: 1000 MG
     Route: 048
  5. WELLBUTRIN SR [Concomitant]
     Dosage: 200 MG
  6. SYMBICORT [Concomitant]
     Dosage: 2 PUFFS TWICE DAILY
  7. VENTOLIN [Concomitant]
     Dosage: 2 PUFFS EVERY 4 HOURS AS NEEDED

REACTIONS (1)
  - Supraventricular tachycardia [Recovered/Resolved]
